FAERS Safety Report 14066136 (Version 2)
Quarter: 2017Q4

REPORT INFORMATION
  Report Type: Spontaneous
  Country: US (occurrence: US)
  Receive Date: 20171009
  Receipt Date: 20171127
  Transmission Date: 20180321
  Serious: Yes (Hospitalization)
  Sender: FDA-Public Use
  Company Number: US-NOVOPROD-565166

PATIENT
  Age: 74 Year
  Sex: Male
  Weight: 83.9 kg

DRUGS (2)
  1. NOVOLIN N [Suspect]
     Active Substance: INSULIN HUMAN
     Indication: TYPE 2 DIABETES MELLITUS
     Dosage: 12-15 U
     Route: 058
     Dates: start: 2015
  2. NOVOLIN N [Suspect]
     Active Substance: INSULIN HUMAN
     Dosage: 30 U
     Route: 058
     Dates: start: 2017

REACTIONS (4)
  - Diabetic ketoacidosis [Unknown]
  - Drug ineffective [Not Recovered/Not Resolved]
  - Product quality issue [Not Recovered/Not Resolved]
  - Blood glucose increased [Not Recovered/Not Resolved]

NARRATIVE: CASE EVENT DATE: 2017
